FAERS Safety Report 17514460 (Version 1)
Quarter: 2020Q1

REPORT INFORMATION
  Report Type: Spontaneous
  Country: DE (occurrence: DE)
  Receive Date: 20200307
  Receipt Date: 20200307
  Transmission Date: 20200409
  Serious: Yes (Death, Other)
  Sender: FDA-Public Use
  Company Number: DE-ABBVIE-20K-062-3304426-00

PATIENT
  Sex: Female

DRUGS (8)
  1. MELPHALAN. [Suspect]
     Active Substance: MELPHALAN
     Indication: PLASMA CELL MYELOMA
     Route: 048
     Dates: start: 201908
  2. DACOGEN [Suspect]
     Active Substance: DECITABINE
     Indication: PLASMA CELL MYELOMA
     Dosage: FIRST CYCLE?20 MG/M2
     Route: 042
     Dates: start: 201902
  3. VENETOCLAX. [Suspect]
     Active Substance: VENETOCLAX
     Dosage: 2ND CYCLE
     Route: 048
  4. DACOGEN [Suspect]
     Active Substance: DECITABINE
     Dosage: 2ND CYCLE
     Route: 042
  5. G-CSF [Concomitant]
     Active Substance: GRANULOCYTE COLONY-STIMULATING FACTOR NOS
     Indication: PRODUCT USED FOR UNKNOWN INDICATION
     Dates: start: 201907
  6. DARZALEX [Suspect]
     Active Substance: DARATUMUMAB
     Indication: PLASMA CELL MYELOMA
     Route: 065
     Dates: start: 201903
  7. VENETOCLAX. [Suspect]
     Active Substance: VENETOCLAX
     Indication: PLASMA CELL MYELOMA
     Dosage: FIRST CYCLE
     Route: 048
     Dates: start: 201902
  8. ROMIPLOSTIM [Concomitant]
     Active Substance: ROMIPLOSTIM
     Indication: PRODUCT USED FOR UNKNOWN INDICATION
     Dates: start: 201907

REACTIONS (5)
  - Acute myeloid leukaemia [Fatal]
  - Product use issue [Recovered/Resolved]
  - Plasma cell myeloma [Fatal]
  - Urinary tract infection [Unknown]
  - Off label use [Recovered/Resolved]
